FAERS Safety Report 20594406 (Version 1)
Quarter: 2022Q1

REPORT INFORMATION
  Report Type: Spontaneous
  Country: DE (occurrence: DE)
  Receive Date: 20220315
  Receipt Date: 20220315
  Transmission Date: 20220423
  Serious: Yes (Hospitalization)
  Sender: FDA-Public Use
  Company Number: DE-ABBVIE-22K-062-4315546-00

PATIENT
  Age: 12 Year
  Sex: Male
  Weight: 35 kg

DRUGS (4)
  1. VALPROATE SODIUM [Suspect]
     Active Substance: VALPROATE SODIUM
     Indication: Lennox-Gastaut syndrome
     Route: 048
     Dates: end: 20191212
  2. LAMOTRIGINE [Suspect]
     Active Substance: LAMOTRIGINE
     Indication: Lennox-Gastaut syndrome
     Route: 048
  3. TOPIRAMATE [Suspect]
     Active Substance: TOPIRAMATE
     Indication: Lennox-Gastaut syndrome
     Route: 048
     Dates: end: 20200126
  4. INOVELON [Concomitant]
     Active Substance: RUFINAMIDE
     Indication: Product used for unknown indication

REACTIONS (2)
  - Fall [Unknown]
  - Medication error [Unknown]

NARRATIVE: CASE EVENT DATE: 20191211
